FAERS Safety Report 11073934 (Version 2)
Quarter: 2016Q4

REPORT INFORMATION
  Report Type: Report from Study
  Country: JP (occurrence: JP)
  Receive Date: 20150429
  Receipt Date: 20161122
  Transmission Date: 20170206
  Serious: Yes (Death)
  Sender: FDA-Public Use
  Company Number: JP-ROCHE-1569680

PATIENT
  Age: 68 Year
  Sex: Female
  Weight: 52 kg

DRUGS (7)
  1. TANKARU [Concomitant]
     Dosage: DOSAGE IS UNCERTAIN.
     Route: 048
  2. FERRIC CITRATE [Concomitant]
     Active Substance: TETRAFERRIC TRICITRATE DECAHYDRATE
     Dosage: DOSAGE IS UNCERTAIN.?DRUG REPORTED AS RIONA
     Route: 048
  3. TEPRENONE [Concomitant]
     Active Substance: TEPRENONE
     Dosage: DOSAGE IS UNCERTAIN.?DRUG REPORTED AS SEFTAC
     Route: 048
  4. CALFINA [Concomitant]
     Active Substance: ALFACALCIDOL
     Dosage: DOSAGE IS UNCERTAIN.
     Route: 048
  5. METHOXY POLYETHYLENE GLYCOL-EPOETIN BETA [Suspect]
     Active Substance: METHOXY POLYETHYLENE GLYCOL-EPOETIN BETA
     Indication: NEPHROGENIC ANAEMIA
     Route: 065
     Dates: start: 20141203
  6. MUCOSOLVAN [Concomitant]
     Active Substance: AMBROXOL HYDROCHLORIDE
     Dosage: DOSAGE IS UNCERTAIN.
     Route: 048
  7. AZILVA [Concomitant]
     Active Substance: AZILSARTAN KAMEDOXOMIL
     Dosage: DOSAGE IS UNCERTAIN.
     Route: 048

REACTIONS (1)
  - Subarachnoid haemorrhage [Fatal]

NARRATIVE: CASE EVENT DATE: 20150320
